FAERS Safety Report 5501204-7 (Version None)
Quarter: 2007Q4

REPORT INFORMATION
  Report Type: 
  Country: None (occurrence: None)
  Receive Date: 20071026
  Receipt Date: 20071019
  Transmission Date: 20080405
  Serious: Yes (Hospitalization, Other)
  Sender: FDA-Public Use
  Company Number: WAES 0710USA02258

PATIENT
  Age: 71 Year
  Sex: Female
  Weight: 69.8539 kg

DRUGS (10)
  1. DECADRON [Suspect]
     Dosage: PO
     Route: 048
  2. ASPIRIN [Suspect]
  3. DIGOXIN [Suspect]
  4. DUONEB [Suspect]
  5. LASIX [Suspect]
  6. LEVAQUIN [Suspect]
  7. MUCOMYST [Suspect]
  8. LOVENOX [Concomitant]
  9. TEMODAR [Concomitant]
  10. METOPROLOL [Concomitant]

REACTIONS (9)
  - ALPHA HAEMOLYTIC STREPTOCOCCAL INFECTION [None]
  - BLOOD CULTURE POSITIVE [None]
  - FATIGUE [None]
  - HALLUCINATION [None]
  - LETHARGY [None]
  - METABOLIC ENCEPHALOPATHY [None]
  - ORAL INTAKE REDUCED [None]
  - TOXIC ENCEPHALOPATHY [None]
  - VISUAL DISTURBANCE [None]
